FAERS Safety Report 17616643 (Version 1)
Quarter: 2020Q2

REPORT INFORMATION
  Report Type: Spontaneous
  Country: CN (occurrence: CN)
  Receive Date: 20200402
  Receipt Date: 20200402
  Transmission Date: 20200713
  Serious: Yes (Hospitalization, Other)
  Sender: FDA-Public Use
  Company Number: CN-BAXTER-2020BAX006848

PATIENT
  Age: 63 Year
  Sex: Female
  Weight: 47 kg

DRUGS (6)
  1. ENDOXAN [Suspect]
     Active Substance: CYCLOPHOSPHAMIDE
     Route: 041
     Dates: start: 20200311, end: 20200311
  2. MEI AN [Suspect]
     Active Substance: MESNA
     Indication: LEUKAEMIA
     Route: 041
     Dates: start: 20200304, end: 20200305
  3. ENDOXAN [Suspect]
     Active Substance: CYCLOPHOSPHAMIDE
     Dosage: DOSE RE-INTRODUCED
     Route: 041
     Dates: start: 202003
  4. MEI AN [Suspect]
     Active Substance: MESNA
     Dosage: DOSE RE-INTRODUCED
     Route: 041
     Dates: start: 202003
  5. ENDOXAN [Suspect]
     Active Substance: CYCLOPHOSPHAMIDE
     Indication: LEUKAEMIA
     Route: 041
     Dates: start: 20200304, end: 20200304
  6. MEI AN [Suspect]
     Active Substance: MESNA
     Route: 041
     Dates: start: 20200311, end: 20200312

REACTIONS (2)
  - Platelet count decreased [Recovered/Resolved]
  - Haemorrhage [Recovered/Resolved]

NARRATIVE: CASE EVENT DATE: 20200313
